FAERS Safety Report 4313149-9 (Version None)
Quarter: 2004Q1

REPORT INFORMATION
  Report Type: 
  Country: None (occurrence: None)
  Receive Date: 20040308
  Receipt Date: 20031202
  Transmission Date: 20041129
  Serious: Yes (Other)
  Sender: FDA-Public Use
  Company Number: 200320387US

PATIENT
  Sex: Female
  Weight: 81.36 kg

DRUGS (17)
  1. ARAVA [Suspect]
     Indication: POLYARTHRITIS
     Route: 048
     Dates: start: 20000915, end: 20010901
  2. PRINIVIL [Concomitant]
     Indication: HYPERTENSION
  3. PLAQUENIL [Concomitant]
     Indication: ARTHROPATHY
  4. PREDNISONE [Concomitant]
     Route: 048
  5. NEORAL [Concomitant]
  6. NAPROSYN [Concomitant]
     Route: 048
  7. CEFADROXIL [Concomitant]
     Dates: start: 20010501, end: 20010501
  8. BACTROBAN [Concomitant]
     Dosage: DOSE: 2%
     Route: 061
     Dates: start: 20010501
  9. ALL OTHER THERAPEUTIC PRODUCTS [Concomitant]
     Dosage: DOSE: NOT PROVIDED
     Dates: start: 20010601
  10. TEQUIN [Concomitant]
     Route: 048
     Dates: start: 20011201, end: 20011201
  11. GUAIFENESIN [Concomitant]
     Route: 048
     Dates: start: 20011201
  12. CEPHALEXIN [Concomitant]
     Route: 048
     Dates: start: 20020201, end: 20020201
  13. CEFUROXIME [Concomitant]
     Route: 048
     Dates: start: 20020501, end: 20020501
  14. PROMETHAZINE DM [Concomitant]
     Dosage: DOSE: NOT PROVIDED
     Route: 048
     Dates: start: 20020501
  15. PROMETHAZINE VC PLAIN [Concomitant]
     Dosage: DOSE: NOT PROVIDED
     Dates: start: 20010101
  16. SULFAMETHOXAZOLE + TRIMETHOPRIM [Concomitant]
     Dosage: DOSE: NOT PROVIDED
     Route: 048
     Dates: start: 20010101, end: 20010101
  17. LASIX [Concomitant]
     Dosage: DOSE: NOT PROVIDED

REACTIONS (19)
  - ALOPECIA [None]
  - ASCITES [None]
  - ASPARTATE AMINOTRANSFERASE INCREASED [None]
  - BLOOD BILIRUBIN INCREASED [None]
  - CARDIOMEGALY [None]
  - DYSPNOEA [None]
  - FATIGUE [None]
  - GRAVITATIONAL OEDEMA [None]
  - HEPATIC STEATOSIS [None]
  - INFECTION [None]
  - INSOMNIA [None]
  - LIVER FUNCTION TEST ABNORMAL [None]
  - MENINGIOMA [None]
  - PAIN IN EXTREMITY [None]
  - PRURITUS [None]
  - RASH [None]
  - RENAL CYST [None]
  - WEIGHT INCREASED [None]
  - WHITE BLOOD CELL COUNT INCREASED [None]
